FAERS Safety Report 5597531-8 (Version None)
Quarter: 2008Q1

REPORT INFORMATION
  Report Type: 
  Country: None (occurrence: None)
  Receive Date: 20080119
  Receipt Date: 20080102
  Transmission Date: 20080703
  Serious: Yes (Hospitalization)
  Sender: FDA-Public Use
  Company Number: 2007SP004127

PATIENT
  Age: 72 Year
  Sex: Female

DRUGS (17)
  1. XOPENEX [Suspect]
     Indication: CHRONIC OBSTRUCTIVE PULMONARY DISEASE
     Dosage: 1.25 MG/3ML; 1X; INHALATION, 0.63 MG/3ML; TID; INHALATION
     Route: 055
     Dates: start: 20071205, end: 20071205
  2. XOPENEX [Suspect]
     Indication: EMPHYSEMA
     Dosage: 1.25 MG/3ML; 1X; INHALATION, 0.63 MG/3ML; TID; INHALATION
     Route: 055
     Dates: start: 20071205, end: 20071205
  3. XOPENEX [Suspect]
     Indication: CHRONIC OBSTRUCTIVE PULMONARY DISEASE
     Dosage: 1.25 MG/3ML; 1X; INHALATION, 0.63 MG/3ML; TID; INHALATION
     Route: 055
     Dates: start: 20071201
  4. XOPENEX [Suspect]
     Indication: EMPHYSEMA
     Dosage: 1.25 MG/3ML; 1X; INHALATION, 0.63 MG/3ML; TID; INHALATION
     Route: 055
     Dates: start: 20071201
  5. ALBUTEROL [Concomitant]
  6. DIGOXIN [Concomitant]
  7. METOPROLOL TARTRATE [Concomitant]
  8. DILTIAZEM HCL [Concomitant]
  9. FUROSEMIDE [Concomitant]
  10. PREDNISONE [Concomitant]
  11. WARFARIN SODIUM [Concomitant]
  12. SEROTONIN ANTAGONISTS [Concomitant]
  13. AMBIEN [Concomitant]
  14. XANAX [Concomitant]
  15. POTASSIUM CHLORIDE [Concomitant]
  16. CHEMOTHERAPEUTICS NOS [Concomitant]
  17. OXYGEN [Concomitant]

REACTIONS (12)
  - ATRIAL FIBRILLATION [None]
  - CARDIAC FAILURE [None]
  - CARDIAC FAILURE CONGESTIVE [None]
  - CHRONIC OBSTRUCTIVE PULMONARY DISEASE [None]
  - HYPOMAGNESAEMIA [None]
  - LEUKOCYTOSIS [None]
  - MALAISE [None]
  - NASOPHARYNGITIS [None]
  - OEDEMA PERIPHERAL [None]
  - PALPITATIONS [None]
  - PULMONARY OEDEMA [None]
  - WHEEZING [None]
